FAERS Safety Report 7504000-4 (Version None)
Quarter: 2011Q2

REPORT INFORMATION
  Report Type: 
  Country: None (occurrence: None)
  Receive Date: 20110518
  Receipt Date: 20110510
  Transmission Date: 20111010
  Serious: Yes (Other)
  Sender: FDA-Public Use
  Company Number: B0719042A

PATIENT
  Age: 51 Year
  Sex: Female

DRUGS (2)
  1. ULTRAVIOLET B LIGHT (ULTRAVIOLET B LIGHT) [Suspect]
     Indication: PSORIASIS
     Dosage: 600 SEE TEXT
  2. ACITRETIN [Suspect]
     Indication: PSORIASIS
     Dosage: 25 MG, PER DAY

REACTIONS (2)
  - PHOTOSENSITIVITY REACTION [None]
  - THERAPEUTIC RESPONSE DECREASED [None]
